FAERS Safety Report 19904987 (Version 1)
Quarter: 2021Q4

REPORT INFORMATION
  Report Type: Report from Study
  Country: None (occurrence: US)
  Receive Date: 20211001
  Receipt Date: 20211001
  Transmission Date: 20220304
  Serious: Yes (Hospitalization)
  Sender: FDA-Public Use
  Company Number: US-ABBVIE-21K-163-4103087-00

PATIENT
  Age: 44 Year
  Sex: Male

DRUGS (2)
  1. SKYRIZI [Suspect]
     Active Substance: RISANKIZUMAB-RZAA
     Indication: Psoriasis
     Route: 058
     Dates: start: 20210804
  2. CLINDAMYCIN [Concomitant]
     Active Substance: CLINDAMYCIN
     Indication: Product used for unknown indication
     Dosage: INJECT 2 SYRINGE AT WEEK 0, WEEK 4 AND EVERY 12 WEEKS THERE AFTER
     Route: 058

REACTIONS (1)
  - Hernia perforation [Not Recovered/Not Resolved]

NARRATIVE: CASE EVENT DATE: 20210824
